FAERS Safety Report 7446983-7 (Version None)
Quarter: 2011Q2

REPORT INFORMATION
  Report Type: 
  Country: None (occurrence: None)
  Receive Date: 20110429
  Receipt Date: 20110420
  Transmission Date: 20111010
  Serious: Yes (Other)
  Sender: FDA-Public Use
  Company Number: US-US-EMD SERONO, INC.-7055486

PATIENT
  Sex: Female
  Weight: 54 kg

DRUGS (2)
  1. UNKNOWN MEDICATION [Concomitant]
     Indication: BLADDER DISORDER
  2. REBIF [Suspect]
     Indication: MULTIPLE SCLEROSIS
     Route: 058
     Dates: start: 20040202

REACTIONS (1)
  - RENAL NEOPLASM [None]
